FAERS Safety Report 21726180 (Version 1)
Quarter: 2022Q4

REPORT INFORMATION
  Report Type: Spontaneous
  Country: US (occurrence: US)
  Receive Date: 20221214
  Receipt Date: 20221214
  Transmission Date: 20230112
  Serious: No
  Sender: FDA-Public Use
  Company Number: US-NOVEN PHARMACEUTICALS, INC.-2022-NOV-US000583

PATIENT
  Sex: Female

DRUGS (7)
  1. MINIVELLE [Interacting]
     Active Substance: ESTRADIOL
     Indication: Gender dysphoria
     Dosage: 0.1 MG, 2 PATCH, 2/ WEEK, (3-4 DAYS)
     Route: 062
     Dates: start: 202206
  2. MINIVELLE [Interacting]
     Active Substance: ESTRADIOL
     Indication: Trans-sexualism
     Dosage: 0.1 MG, 1 PATCH, 2/ WEEK, (3-4 DAYS)
     Route: 062
     Dates: start: 2022, end: 202206
  3. MINIVELLE [Interacting]
     Active Substance: ESTRADIOL
     Indication: Off label use
  4. METFORMIN [Interacting]
     Active Substance: METFORMIN HYDROCHLORIDE
     Indication: Appetite disorder
     Dosage: 1000 MG AT DINNER AND 1000 MG AT BREAKFAST, FOR 2 WEEKS
     Route: 065
  5. METFORMIN [Interacting]
     Active Substance: METFORMIN HYDROCHLORIDE
     Indication: Weight decreased
     Dosage: 1000 MG AT DINNER AND 500 MG AT BREAKFAST, FOR 2 WEEKS
     Route: 065
  6. METFORMIN [Interacting]
     Active Substance: METFORMIN HYDROCHLORIDE
     Dosage: 1000 MG, AT NIGHT, FOR 2 WEEK
     Route: 065
  7. METFORMIN [Interacting]
     Active Substance: METFORMIN HYDROCHLORIDE
     Dosage: 500 MG, AT NIGHT, FOR 2 WEEK
     Route: 065
     Dates: start: 202111

REACTIONS (11)
  - Fat redistribution [Unknown]
  - Mastoptosis [Unknown]
  - Weight decreased [Unknown]
  - Drug interaction [Recovered/Resolved]
  - Blood oestrogen decreased [Recovered/Resolved]
  - Application site erythema [Not Recovered/Not Resolved]
  - Application site pruritus [Not Recovered/Not Resolved]
  - Application site rash [Not Recovered/Not Resolved]
  - Diarrhoea [Unknown]
  - Intentional dose omission [Recovered/Resolved]
  - Off label use [Not Recovered/Not Resolved]

NARRATIVE: CASE EVENT DATE: 20220101
